FAERS Safety Report 15940648 (Version 2)
Quarter: 2019Q1

REPORT INFORMATION
  Report Type: Spontaneous
  Country: US (occurrence: US)
  Receive Date: 20190208
  Receipt Date: 20190225
  Transmission Date: 20190417
  Serious: Yes (Other)
  Sender: FDA-Public Use
  Company Number: US-ASTRAZENECA-2018SF21652

PATIENT
  Age: 26659 Day
  Sex: Female

DRUGS (33)
  1. IBUPROFEN. [Concomitant]
     Active Substance: IBUPROFEN
  2. NEXIUM [Suspect]
     Active Substance: ESOMEPRAZOLE MAGNESIUM
     Route: 048
  3. NEXIUM [Suspect]
     Active Substance: ESOMEPRAZOLE MAGNESIUM
     Route: 048
     Dates: start: 20110531
  4. NEXIUM I.V. [Suspect]
     Active Substance: ESOMEPRAZOLE SODIUM
     Route: 042
     Dates: start: 20110531, end: 20170307
  5. HYDROCODONE-APAP [Concomitant]
     Active Substance: ACETAMINOPHEN\HYDROCODONE
  6. COLCHICINE. [Concomitant]
     Active Substance: COLCHICINE
  7. OMEPRAZOLE. [Concomitant]
     Active Substance: OMEPRAZOLE
  8. GABAPENTIN. [Concomitant]
     Active Substance: GABAPENTIN
  9. TRAMADOL. [Concomitant]
     Active Substance: TRAMADOL
  10. NIFEDICAL XL [Concomitant]
     Active Substance: NIFEDIPINE
  11. FUROSEMIDE. [Concomitant]
     Active Substance: FUROSEMIDE
  12. CILOSTAZOL. [Concomitant]
     Active Substance: CILOSTAZOL
  13. SIMVASTATIN. [Concomitant]
     Active Substance: SIMVASTATIN
  14. CYMBALTA [Concomitant]
     Active Substance: DULOXETINE HYDROCHLORIDE
  15. CYCLOBENZAPRINE. [Concomitant]
     Active Substance: CYCLOBENZAPRINE
  16. NASONEX [Concomitant]
     Active Substance: MOMETASONE FUROATE
  17. DICLOFENAC [Concomitant]
     Active Substance: DICLOFENAC
  18. ALPRAZOLAM. [Concomitant]
     Active Substance: ALPRAZOLAM
  19. CYANOCOBALAMIN. [Concomitant]
     Active Substance: CYANOCOBALAMIN
  20. NEXIUM [Suspect]
     Active Substance: ESOMEPRAZOLE MAGNESIUM
     Route: 048
     Dates: start: 20110531, end: 20170307
  21. FERROUS SULFATE. [Concomitant]
     Active Substance: FERROUS SULFATE
  22. MELOXICAM. [Concomitant]
     Active Substance: MELOXICAM
  23. LEVAQUIN [Concomitant]
     Active Substance: LEVOFLOXACIN
  24. CEPHALEXIN. [Concomitant]
     Active Substance: CEPHALEXIN
  25. DICYCLOMINE [Concomitant]
     Active Substance: DICYCLOMINE HYDROCHLORIDE
  26. ASPIRIN. [Concomitant]
     Active Substance: ASPIRIN
  27. KLOR-CON [Concomitant]
     Active Substance: POTASSIUM CHLORIDE
  28. BISACODYL. [Concomitant]
     Active Substance: BISACODYL
  29. PANTOPRAZOLE SODIUM. [Concomitant]
     Active Substance: PANTOPRAZOLE SODIUM
  30. DIOVAN HCT [Concomitant]
     Active Substance: HYDROCHLOROTHIAZIDE\VALSARTAN
  31. CIPROFLOXACIN HYDROCHLORIDE. [Concomitant]
     Active Substance: CIPROFLOXACIN HYDROCHLORIDE
  32. MISOPROSTOL. [Concomitant]
     Active Substance: MISOPROSTOL
  33. METHOCARBAMOL. [Concomitant]
     Active Substance: METHOCARBAMOL

REACTIONS (2)
  - Chronic kidney disease [Unknown]
  - Renal injury [Unknown]

NARRATIVE: CASE EVENT DATE: 20150922
